FAERS Safety Report 4972543-3 (Version None)
Quarter: 2006Q2

REPORT INFORMATION
  Report Type: 
  Country: None (occurrence: None)
  Receive Date: 20060413
  Receipt Date: 20060202
  Transmission Date: 20061013
  Serious: Yes (Hospitalization)
  Sender: FDA-Public Use
  Company Number: US-MERCK-0602USA01603

PATIENT
  Age: 76 Year
  Sex: Female
  Weight: 89 kg

DRUGS (2)
  1. VIOXX [Suspect]
     Indication: ARTHRITIS
     Route: 065
     Dates: start: 19980101, end: 20040101
  2. CELEBREX [Concomitant]
     Route: 065

REACTIONS (5)
  - BLOOD GLUCOSE ABNORMAL [None]
  - CARDIAC DISORDER [None]
  - CHEST PAIN [None]
  - HEART RATE INCREASED [None]
  - THROMBOSIS [None]
